FAERS Safety Report 9523378 (Version 2)
Quarter: 2014Q1

REPORT INFORMATION
  Report Type: Spontaneous
  Country: US (occurrence: US)
  Receive Date: 20130913
  Receipt Date: 20140317
  Transmission Date: 20141002
  Serious: Yes (Hospitalization)
  Sender: FDA-Public Use
  Company Number: US-B.I. PHARMACEUTICALS,INC./RIDGEFIELD-2013-BI-28004BP

PATIENT
  Age: 67 Year
  Sex: Female
  Weight: 76.66 kg

DRUGS (11)
  1. PRADAXA [Suspect]
     Indication: ATRIAL FIBRILLATION
     Dosage: 300 MG
     Route: 065
     Dates: start: 20110405, end: 20111004
  2. AMLODIPINE [Concomitant]
     Dosage: 5 MG
     Route: 065
  3. LOSARTAN [Concomitant]
     Dosage: 50 MG
     Route: 065
  4. NITROGLYCERIN [Concomitant]
     Route: 060
  5. CRESTOR [Concomitant]
     Dosage: 20 MG
     Route: 065
  6. ASPIRIN [Concomitant]
     Dosage: 81 MG
     Route: 065
  7. HYDROCHLOROTHIAZIDE [Concomitant]
     Dosage: 25 MG
     Route: 065
  8. FAMOTIDINE [Concomitant]
     Dosage: 40 MG
     Route: 065
  9. FISH OIL [Concomitant]
     Dosage: 2000 MG
     Route: 065
  10. METFORMIN [Concomitant]
     Dosage: 500 MG
     Route: 065
  11. CHOLECALCIFEROL [Concomitant]
     Dosage: 10000 U
     Route: 065

REACTIONS (4)
  - Gastrointestinal haemorrhage [Unknown]
  - Haemorrhagic stroke [Unknown]
  - Anaemia [Unknown]
  - Embolic cerebral infarction [Unknown]
